FAERS Safety Report 25154671 (Version 1)
Quarter: 2025Q2

REPORT INFORMATION
  Report Type: Spontaneous
  Country: KR (occurrence: KR)
  Receive Date: 20250403
  Receipt Date: 20250403
  Transmission Date: 20250717
  Serious: Yes (Hospitalization)
  Sender: ROCHE
  Company Number: KR-ROCHE-10000246222

PATIENT
  Age: 17 Year
  Sex: Male

DRUGS (1)
  1. AVASTIN [Suspect]
     Active Substance: BEVACIZUMAB
     Indication: Medulloblastoma
     Route: 065
     Dates: start: 20240512, end: 20240512

REACTIONS (5)
  - Blood creatinine increased [Recovering/Resolving]
  - Urine analysis abnormal [Recovering/Resolving]
  - Electrolyte imbalance [Recovering/Resolving]
  - Thrombotic microangiopathy [Recovering/Resolving]
  - Hypertension [Recovering/Resolving]

NARRATIVE: CASE EVENT DATE: 20240530
